FAERS Safety Report 20603672 (Version 1)
Quarter: 2022Q1

REPORT INFORMATION
  Report Type: Spontaneous
  Country: US (occurrence: US)
  Receive Date: 20220316
  Receipt Date: 20220316
  Transmission Date: 20220423
  Serious: Yes (Death, Other)
  Sender: FDA-Public Use
  Company Number: US-ALVOGEN-2022-ALVOGEN-118591

PATIENT
  Age: 55 Year
  Sex: Male

DRUGS (5)
  1. FLUOXETINE [Suspect]
     Active Substance: FLUOXETINE HYDROCHLORIDE
     Indication: Suicide attempt
  2. METOPROLOL [Suspect]
     Active Substance: METOPROLOL
     Indication: Suicide attempt
  3. AMLODIPINE [Suspect]
     Active Substance: AMLODIPINE BESYLATE
     Indication: Suicide attempt
  4. INSULIN NOS [Suspect]
     Active Substance: INSULIN NOS
     Indication: Suicide attempt
  5. RISPERIDONE [Suspect]
     Active Substance: RISPERIDONE
     Indication: Suicide attempt

REACTIONS (1)
  - Completed suicide [Fatal]
